FAERS Safety Report 8481186-9 (Version None)
Quarter: 2012Q3

REPORT INFORMATION
  Report Type: 
  Country: None (occurrence: None)
  Receive Date: 20120702
  Receipt Date: 20120629
  Transmission Date: 20120928
  Serious: Yes (Death, Other)
  Sender: FDA-Public Use
  Company Number: PHFR2012GB003315

PATIENT
  Sex: Male

DRUGS (8)
  1. LANSOPRAZOLE [Concomitant]
  2. CLOZARIL [Suspect]
     Indication: SCHIZOPHRENIA
     Dosage: 500 MG, DAILY
     Route: 048
     Dates: start: 20031001
  3. LORAZEPAM [Concomitant]
  4. SIMVASTATIN [Concomitant]
     Indication: LIBIDO INCREASED
     Dosage: 20 MG, DAILY
     Route: 048
  5. PIRENZEPINE [Concomitant]
  6. SERTRALINE HYDROCHLORIDE [Concomitant]
  7. LAMOTRIGINE [Concomitant]
     Indication: MUSCLE DISORDER
     Dosage: 150 MG, DAILY
     Route: 048
  8. DOCUSATE SODIUM [Concomitant]

REACTIONS (4)
  - HYPERTENSIVE HEART DISEASE [None]
  - WEIGHT INCREASED [None]
  - CORONARY ARTERY DISEASE [None]
  - MYOCARDIAL INFARCTION [None]
